FAERS Safety Report 9199275 (Version 1)
Quarter: 2013Q1

REPORT INFORMATION
  Report Type: Spontaneous
  Country: FR (occurrence: None)
  Receive Date: 20130326
  Receipt Date: 20130326
  Transmission Date: 20140127
  Serious: Yes (Other)
  Sender: FDA-Public Use
  Company Number: SYM-2013-02065

PATIENT
  Age: 71 Year
  Sex: Female

DRUGS (8)
  1. MONO TILDIEM [Suspect]
     Route: 048
  2. KIVEXA [Suspect]
     Route: 048
  3. ALDACTONE [Suspect]
     Route: 048
  4. LUCENTIS [Suspect]
     Route: 047
  5. SUSTIVA [Suspect]
     Route: 048
  6. CARTEOL [Suspect]
     Route: 047
  7. TRAVATAN [Suspect]
     Route: 047
  8. CRESTOR [Suspect]
     Route: 048

REACTIONS (1)
  - Hypertrophic cardiomyopathy [None]
